FAERS Safety Report 18543692 (Version 1)
Quarter: 2020Q4

REPORT INFORMATION
  Report Type: Spontaneous
  Country: US (occurrence: US)
  Receive Date: 20201125
  Receipt Date: 20201125
  Transmission Date: 20210114
  Serious: No
  Sender: FDA-Public Use
  Company Number: US-JNJFOC-20201139013

PATIENT
  Age: 64 Year
  Sex: Female

DRUGS (4)
  1. PROTONIX [Concomitant]
     Active Substance: PANTOPRAZOLE SODIUM
  2. DRISDOL [Concomitant]
     Active Substance: ERGOCALCIFEROL
  3. TREMFYA [Suspect]
     Active Substance: GUSELKUMAB
     Indication: PSORIASIS
     Dosage: 100MG 0, 4, + Q 8 WKS
     Route: 065
  4. VITAMIN B12 [Concomitant]
     Active Substance: CYANOCOBALAMIN

REACTIONS (3)
  - Oral herpes [Not Recovered/Not Resolved]
  - Herpes simplex [Not Recovered/Not Resolved]
  - Dry eye [Not Recovered/Not Resolved]
